FAERS Safety Report 7985565-5 (Version None)
Quarter: 2011Q4

REPORT INFORMATION
  Report Type: 
  Country: None (occurrence: None)
  Receive Date: 20111216
  Receipt Date: 20111213
  Transmission Date: 20120403
  Serious: Yes (Hospitalization)
  Sender: FDA-Public Use
  Company Number: IT-BRISTOL-MYERS SQUIBB COMPANY-16248940

PATIENT
  Age: 71 Year
  Sex: Male

DRUGS (7)
  1. SEROQUEL [Concomitant]
     Dosage: 1 DF: 2 UNIT
  2. COUMADIN [Suspect]
     Indication: ATRIAL FIBRILLATION
     Dosage: 1 DF: 1 UNIT,INTER: 31OCT2011
     Route: 048
     Dates: start: 20101031
  3. CORDARONE [Concomitant]
     Dosage: 1 DF: 1 UNIT
     Route: 048
  4. LASIX [Concomitant]
     Dosage: 1 DF: 1 UNIT
  5. METFORMIN HCL [Concomitant]
     Route: 048
  6. ALLOPURINOL [Concomitant]
     Dosage: 1 DF :1 UNIT
  7. NEXIUM [Concomitant]
     Dosage: 1 DF: 1 UNIT
     Route: 048

REACTIONS (2)
  - RECTAL HAEMORRHAGE [None]
  - ANAEMIA [None]
